FAERS Safety Report 7730865-7 (Version None)
Quarter: 2011Q3

REPORT INFORMATION
  Report Type: 
  Country: None (occurrence: None)
  Receive Date: 20110906
  Receipt Date: 20110831
  Transmission Date: 20111222
  Serious: Yes (Death)
  Sender: FDA-Public Use
  Company Number: US-PFIZER INC-2011204475

PATIENT
  Sex: Male

DRUGS (3)
  1. REVATIO [Suspect]
     Indication: ATRIAL FLUTTER
  2. REVATIO [Suspect]
     Indication: RENAL TRANSPLANT
  3. REVATIO [Suspect]
     Indication: ATRIAL FIBRILLATION
     Dosage: 20 MG, 3X/DAY
     Route: 048
     Dates: start: 20110325, end: 20110801

REACTIONS (1)
  - DEATH [None]
